FAERS Safety Report 10366592 (Version 1)
Quarter: 2014Q3

REPORT INFORMATION
  Report Type: Spontaneous
  Country: FR (occurrence: FR)
  Receive Date: 20140806
  Receipt Date: 20140806
  Transmission Date: 20150326
  Serious: Yes (Hospitalization, Other)
  Sender: FDA-Public Use
  Company Number: FR-BAXTER-2014BAX042898

PATIENT
  Age: 62 Year
  Sex: Female

DRUGS (17)
  1. XELODA [Suspect]
     Active Substance: CAPECITABINE
     Indication: BREAST CANCER
     Dosage: 19 CYCLES
     Route: 042
     Dates: start: 20100915, end: 20120328
  2. ZOMETA [Concomitant]
     Active Substance: ZOLEDRONIC ACID
     Indication: PRODUCT USED FOR UNKNOWN INDICATION
     Route: 065
     Dates: start: 2009
  3. EPIRUBICINE SANDOZ [Suspect]
     Active Substance: EPIRUBICIN
     Indication: BREAST CANCER
     Dosage: 6 CYCLES
     Route: 042
     Dates: start: 20120425, end: 20120816
  4. INNOHEP [Concomitant]
     Active Substance: TINZAPARIN SODIUM
     Indication: ANTICOAGULANT THERAPY
     Route: 065
     Dates: start: 201403
  5. PACLITAXEL KABI [Suspect]
     Active Substance: PACLITAXEL
     Indication: BREAST CANCER
     Dosage: 13 CYCLES
     Route: 042
     Dates: start: 20130410, end: 20130904
  6. ENDOXAN 50 MG, COMPRIM? ENROB? [Suspect]
     Active Substance: CYCLOPHOSPHAMIDE
     Indication: BREAST CANCER
     Route: 048
     Dates: start: 20131010, end: 20131107
  7. DOCETAXEL HOSPIRA [Suspect]
     Active Substance: DOCETAXEL
     Indication: BREAST CANCER
     Dosage: 6 CYCLES
     Route: 042
     Dates: start: 20121126, end: 20130313
  8. TAMOXIFENE SANDOZ [Suspect]
     Active Substance: TAMOXIFEN
     Indication: BREAST CANCER
     Route: 048
     Dates: start: 20120919, end: 20121009
  9. HALAVEN [Concomitant]
     Active Substance: ERIBULIN MESYLATE
     Indication: PRODUCT USED FOR UNKNOWN INDICATION
     Route: 065
     Dates: start: 20140312, end: 20140319
  10. ENDOXAN 1000 MG, POUDRE POUR SOLUTION INJECTABLE [Suspect]
     Active Substance: CYCLOPHOSPHAMIDE
     Indication: BREAST CANCER
     Dosage: 6 CYCLES
     Route: 042
     Dates: start: 20120425, end: 20120816
  11. XELODA [Suspect]
     Active Substance: CAPECITABINE
     Dosage: 14 DAYS/21DAYS
     Route: 065
     Dates: start: 20131127, end: 20140115
  12. XGEVA [Suspect]
     Active Substance: DENOSUMAB
     Indication: PRODUCT USED FOR UNKNOWN INDICATION
     Route: 058
     Dates: start: 20130717, end: 20131010
  13. AVASTIN [Suspect]
     Active Substance: BEVACIZUMAB
     Indication: BREAST CANCER
     Dosage: 12 CYCLES
     Route: 042
     Dates: start: 20091026, end: 20100407
  14. AVASTIN [Suspect]
     Active Substance: BEVACIZUMAB
     Dosage: 7 CYCLES
     Route: 042
     Dates: start: 20100421, end: 20100826
  15. PACLITAXEL SANDOZ [Suspect]
     Active Substance: PACLITAXEL
     Indication: BREAST CANCER
     Route: 042
     Dates: start: 20091026, end: 20100407
  16. XGEVA [Suspect]
     Active Substance: DENOSUMAB
     Route: 058
     Dates: start: 201401
  17. PAMIDRONATE HOSPIRA [Concomitant]
     Indication: PRODUCT USED FOR UNKNOWN INDICATION
     Route: 065
     Dates: start: 2009

REACTIONS (2)
  - Hepatic cirrhosis [Not Recovered/Not Resolved]
  - Toxicity to various agents [None]

NARRATIVE: CASE EVENT DATE: 201401
